FAERS Safety Report 8564971-4 (Version None)
Quarter: 2012Q3

REPORT INFORMATION
  Report Type: 
  Country: None (occurrence: None)
  Receive Date: 20120803
  Receipt Date: 20120723
  Transmission Date: 20120928
  Serious: Yes (Other)
  Sender: FDA-Public Use
  Company Number: AU-ROCHE-1087746

PATIENT
  Sex: Male

DRUGS (3)
  1. LUCENTIS [Suspect]
     Indication: AGE-RELATED MACULAR DEGENERATION
     Route: 050
     Dates: start: 20111001
  2. BETADINE [Suspect]
     Indication: PRODUCT USED FOR UNKNOWN INDICATION
     Route: 065
  3. LUCENTIS [Suspect]
     Route: 050
     Dates: start: 20120703

REACTIONS (5)
  - INJURY CORNEAL [None]
  - EYE IRRITATION [None]
  - IODINE ALLERGY [None]
  - OCULAR DISCOMFORT [None]
  - FOREIGN BODY SENSATION IN EYES [None]
